FAERS Safety Report 11197080 (Version 1)
Quarter: 2015Q2

REPORT INFORMATION
  Report Type: Report from Study
  Country: US (occurrence: US)
  Receive Date: 20150617
  Receipt Date: 20150617
  Transmission Date: 20150821
  Serious: Yes (Life-Threatening, Hospitalization)
  Sender: FDA-Public Use
  Company Number: US-TEVA-570613USA

PATIENT
  Age: 67 Year
  Sex: Male
  Weight: 85.4 kg

DRUGS (5)
  1. FLUOROURACIL. [Suspect]
     Active Substance: FLUOROURACIL
     Indication: ADENOCARCINOMA OF COLON
     Dosage: ON DAY 1
     Route: 040
     Dates: start: 20121231
  2. FLUOROURACIL. [Suspect]
     Active Substance: FLUOROURACIL
     Dosage: OVER 46-48 HOURS ON DAY 1
     Route: 042
     Dates: start: 20121231, end: 20130218
  3. LEUCOVORIN [Suspect]
     Active Substance: LEUCOVORIN
     Indication: ADENOCARCINOMA OF COLON
     Dosage: OVER 2 HOURS ON DAY 1
     Route: 042
     Dates: start: 20121231
  4. ELOXATIN [Suspect]
     Active Substance: OXALIPLATIN
     Indication: ADENOCARCINOMA OF COLON
     Dosage: OVER 2 HOURS ON DAY 1
     Route: 042
     Dates: start: 20121231
  5. CELECOXIB/PLACEBO [Suspect]
     Active Substance: CELECOXIB\PLACEBO
     Indication: ADENOCARCINOMA OF COLON
     Route: 065
     Dates: start: 20130114

REACTIONS (1)
  - Glucose tolerance impaired [Recovered/Resolved with Sequelae]

NARRATIVE: CASE EVENT DATE: 20130226
